FAERS Safety Report 21163278 (Version 1)
Quarter: 2022Q3

REPORT INFORMATION
  Report Type: Spontaneous
  Country: US (occurrence: US)
  Receive Date: 20220802
  Receipt Date: 20220802
  Transmission Date: 20221027
  Serious: No
  Sender: FDA-Public Use
  Company Number: US-SUNOVION-2022SUN002281

PATIENT
  Age: 16 Year
  Sex: Female

DRUGS (1)
  1. LATUDA [Suspect]
     Active Substance: LURASIDONE HYDROCHLORIDE
     Indication: Affective disorder
     Dosage: 20 MG, QD
     Route: 048
     Dates: start: 20220512

REACTIONS (5)
  - Pain in extremity [Not Recovered/Not Resolved]
  - Akathisia [Not Recovered/Not Resolved]
  - Restlessness [Not Recovered/Not Resolved]
  - Musculoskeletal stiffness [Not Recovered/Not Resolved]
  - Off label use [Unknown]
